FAERS Safety Report 21888989 (Version 4)
Quarter: 2025Q1

REPORT INFORMATION
  Report Type: Report from Study
  Country: AU (occurrence: AU)
  Receive Date: 20230120
  Receipt Date: 20250324
  Transmission Date: 20250409
  Serious: Yes (Other)
  Sender: TAKEDA
  Company Number: AU-TAKEDA-2023TUS006262

PATIENT
  Age: 51 Year
  Sex: Female

DRUGS (18)
  1. TEDUGLUTIDE [Suspect]
     Active Substance: TEDUGLUTIDE
     Indication: Short-bowel syndrome
     Dosage: 2.8 MILLIGRAM, QD
     Dates: start: 20210301, end: 20230515
  2. TEDUGLUTIDE [Suspect]
     Active Substance: TEDUGLUTIDE
  3. TEDUGLUTIDE [Suspect]
     Active Substance: TEDUGLUTIDE
  4. TEDUGLUTIDE [Suspect]
     Active Substance: TEDUGLUTIDE
  5. SODIUM BICARBONATE [Concomitant]
     Active Substance: SODIUM BICARBONATE
     Indication: Hyperkalaemia
     Dosage: 840 MILLIGRAM, QD
     Dates: start: 20221031
  6. Hydralyte [Concomitant]
     Indication: Dehydration
     Dosage: UNK UNK, QD
     Dates: start: 20221031, end: 20230215
  7. AMITRIPTYLINE [Concomitant]
     Active Substance: AMITRIPTYLINE
     Indication: Mood altered
     Dosage: 10 MILLIGRAM, QD
  8. CARBIMAZOLE [Concomitant]
     Active Substance: CARBIMAZOLE
     Indication: Hyperthyroidism
     Dosage: 5 MILLIGRAM, BID
  9. CARBIMAZOLE [Concomitant]
     Active Substance: CARBIMAZOLE
     Dosage: 10 MILLIGRAM, BID
  10. CLONAZEPAM [Concomitant]
     Active Substance: CLONAZEPAM
     Indication: Anxiety
     Dosage: 0.5 MILLIGRAM, QD
     Dates: start: 201812
  11. WARFARIN [Concomitant]
     Active Substance: WARFARIN
     Indication: Thrombosis
     Dosage: 4.5 MILLIGRAM, QD
     Dates: start: 201606
  12. ASPIRIN [Concomitant]
     Active Substance: ASPIRIN
     Indication: Peripheral vascular disorder
     Dosage: 100 MILLIGRAM, QD
  13. ATORVASTATIN [Concomitant]
     Active Substance: ATORVASTATIN
     Indication: Peripheral vascular disorder
     Dosage: 40 MILLIGRAM, QD
     Dates: start: 201606
  14. VITAMIN A [Concomitant]
     Active Substance: VITAMIN A
     Indication: Vitamin A deficiency
  15. VITAMIN A [Concomitant]
     Active Substance: VITAMIN A
  16. TAUROLIDINE [Concomitant]
     Active Substance: TAUROLIDINE
     Indication: Central venous catheterisation
  17. CREON [Concomitant]
     Active Substance: PANCRELIPASE AMYLASE\PANCRELIPASE LIPASE\PANCRELIPASE PROTEASE
     Indication: Pancreatic enzyme replacement therapy
  18. AMITRIPTYLINE [Concomitant]
     Active Substance: AMITRIPTYLINE
     Indication: Mood altered
     Dosage: 10 MILLIGRAM, QD
     Dates: end: 20230208

REACTIONS (1)
  - Hyperkalaemia [Recovered/Resolved]

NARRATIVE: CASE EVENT DATE: 20220921
